FAERS Safety Report 6480638-0 (Version None)
Quarter: 2009Q4

REPORT INFORMATION
  Report Type: 
  Country: None (occurrence: None)
  Receive Date: 20091208
  Receipt Date: 20091126
  Transmission Date: 20100525
  Serious: Yes (Other)
  Sender: FDA-Public Use
  Company Number: US-PFIZER INC-2009306001

PATIENT
  Sex: Male

DRUGS (2)
  1. XANAX [Suspect]
     Dosage: FREQUENCY: 4X/DAY,
  2. LORTAB [Concomitant]

REACTIONS (3)
  - BRAIN NEOPLASM [None]
  - DYSPHAGIA [None]
  - WITHDRAWAL SYNDROME [None]
